FAERS Safety Report 17313965 (Version 1)
Quarter: 2020Q1

REPORT INFORMATION
  Report Type: Spontaneous
  Country: US (occurrence: US)
  Receive Date: 20200107
  Receipt Date: 20200107
  Transmission Date: 20200409
  Serious: Yes (Hospitalization)
  Sender: FDA-Public Use
  Company Number: None

PATIENT
  Age: 49 Year
  Sex: Female

DRUGS (7)
  1. MULTI-VIT TAB [Concomitant]
  2. PROZAC CAP 40 MG [Concomitant]
  3. PROTONIX TAB 40 MG [Concomitant]
  4. TRAZODONE TAB 100 MG [Concomitant]
  5. PEPCID TAB 40 MG [Concomitant]
  6. HUMIRA [Suspect]
     Active Substance: ADALIMUMAB
     Indication: CROHN^S DISEASE
     Dosage: ?          OTHER DOSE:40 MG/0.8 ML;?
     Route: 058
     Dates: start: 20160823
  7. HYOSCYAMINE TAB 0.125MG [Concomitant]
     Active Substance: HYOSCYAMINE

REACTIONS (1)
  - Condition aggravated [None]

NARRATIVE: CASE EVENT DATE: 20200105
